FAERS Safety Report 12628773 (Version 7)
Quarter: 2016Q4

REPORT INFORMATION
  Report Type: Spontaneous
  Country: CH (occurrence: CH)
  Receive Date: 20160808
  Receipt Date: 20161118
  Transmission Date: 20170207
  Serious: Yes (Life-Threatening, Hospitalization, Disabling, Other)
  Sender: FDA-Public Use
  Company Number: CH-AMGEN-CHESP2016101644

PATIENT
  Age: 17 Year
  Sex: Female
  Weight: 55 kg

DRUGS (26)
  1. DEFIBROTIDE [Concomitant]
     Active Substance: DEFIBROTIDE (BOVINE)
  2. FLUOXETIN [Concomitant]
     Active Substance: FLUOXETINE HYDROCHLORIDE
  3. FUROSEMIDE. [Concomitant]
     Active Substance: FUROSEMIDE
  4. URSOFALK [Concomitant]
     Active Substance: URSODIOL
  5. VITAMIN B12 [Concomitant]
     Active Substance: CYANOCOBALAMIN
     Dosage: 1 MG, UNK
     Route: 042
  6. ENDOXAN [Concomitant]
     Active Substance: CYCLOPHOSPHAMIDE
     Dosage: 2750 MG, UNK
     Route: 042
  7. NEUPOGEN [Concomitant]
     Active Substance: FILGRASTIM
     Dosage: 30 UNK, UNK
     Route: 058
  8. MERONEM [Concomitant]
     Active Substance: MEROPENEM
  9. RENITEN [Concomitant]
     Active Substance: ENALAPRIL
  10. BLINCYTO [Suspect]
     Active Substance: BLINATUMOMAB
     Dosage: 28 MUG, QD
     Route: 042
     Dates: start: 20160513, end: 20160603
  11. VORICONAZOLE. [Concomitant]
     Active Substance: VORICONAZOLE
  12. SOLU-MEDROL [Concomitant]
     Active Substance: METHYLPREDNISOLONE SODIUM SUCCINATE
  13. TEICOPLANIN [Concomitant]
     Active Substance: TEICOPLANIN
  14. ZOVIRAX [Concomitant]
     Active Substance: ACYCLOVIR
  15. CELLCEPT [Concomitant]
     Active Substance: MYCOPHENOLATE MOFETIL\MYCOPHENOLATE MOFETIL HYDROCHLORIDE
     Dosage: 2000 MG, UNK
     Route: 042
  16. ESOMEP [Concomitant]
     Active Substance: ESOMEPRAZOLE
  17. NALOXON [Concomitant]
  18. NOVALGIN [Concomitant]
     Active Substance: METAMIZOLE SODIUM
  19. TEPADINA [Concomitant]
     Active Substance: THIOTEPA
     Dosage: 5 MG/KG, OTHER 2H
     Route: 042
  20. BLINCYTO [Suspect]
     Active Substance: BLINATUMOMAB
     Indication: ACUTE LYMPHOCYTIC LEUKAEMIA
     Dosage: 9 MUG, QD
     Route: 042
     Dates: start: 20160506
  21. LAXOBERON [Concomitant]
     Active Substance: SODIUM PICOSULFATE
  22. PARACETAMOL [Concomitant]
     Active Substance: ACETAMINOPHEN
  23. MORPHINE [Concomitant]
     Active Substance: MORPHINE
  24. BUSULFEX [Concomitant]
     Active Substance: BUSULFAN
     Dosage: 0.8 MG/KG, OVER 2 H
     Route: 042
  25. FLUDARABINE [Concomitant]
     Active Substance: FLUDARABINE PHOSPHATE
     Dosage: 50 MG/M2, UNK
     Route: 042
  26. SANDIMMUN [Concomitant]
     Active Substance: CYCLOSPORINE
     Dosage: 165 MG, UNK
     Route: 042

REACTIONS (8)
  - Graft versus host disease in skin [Not Recovered/Not Resolved]
  - Seizure [Not Recovered/Not Resolved]
  - Venoocclusive disease [Unknown]
  - Loss of consciousness [Not Recovered/Not Resolved]
  - Roseolovirus test positive [Not Recovered/Not Resolved]
  - Neurological decompensation [Not Recovered/Not Resolved]
  - Encephalitis [Not Recovered/Not Resolved]
  - Off label use [Unknown]

NARRATIVE: CASE EVENT DATE: 20160718
